FAERS Safety Report 21855729 (Version 1)
Quarter: 2023Q1

REPORT INFORMATION
  Report Type: Spontaneous
  Country: US (occurrence: US)
  Receive Date: 20230112
  Receipt Date: 20230112
  Transmission Date: 20230417
  Serious: Yes (Disabling, Other)
  Sender: FDA-Public Use
  Company Number: US-TEVA-2023-US-2845337

PATIENT
  Age: 28 Year
  Sex: Female

DRUGS (24)
  1. DOCETAXEL [Suspect]
     Active Substance: DOCETAXEL
     Indication: Breast cancer stage IV
     Dosage: 130 MG DOSE
     Route: 042
     Dates: start: 20141103, end: 20141103
  2. DOCETAXEL [Suspect]
     Active Substance: DOCETAXEL
     Dosage: 130 MG DOSE
     Route: 042
     Dates: start: 20141124, end: 20141124
  3. DOCETAXEL [Suspect]
     Active Substance: DOCETAXEL
     Dosage: 130 MG DOSE
     Route: 042
     Dates: start: 20141215, end: 20141215
  4. DOCETAXEL [Suspect]
     Active Substance: DOCETAXEL
     Dosage: 130 MG DOSE
     Route: 042
     Dates: start: 20150105, end: 20150105
  5. PERJETA [Suspect]
     Active Substance: PERTUZUMAB
     Indication: Breast cancer stage IV
     Dosage: 840 MG DOSE
     Route: 042
     Dates: start: 20140627, end: 20140627
  6. PERJETA [Suspect]
     Active Substance: PERTUZUMAB
     Dosage: 420 MG DOSE, EVERY THREE WEEKS
     Route: 042
     Dates: start: 20140717, end: 20150105
  7. HERCEPTIN [Suspect]
     Active Substance: TRASTUZUMAB
     Indication: Breast cancer stage IV
     Route: 065
     Dates: start: 201202, end: 20121220
  8. HERCEPTIN [Suspect]
     Active Substance: TRASTUZUMAB
     Dosage: 600 MG DOSE
     Route: 042
     Dates: start: 20140627, end: 20140627
  9. HERCEPTIN [Suspect]
     Active Substance: TRASTUZUMAB
     Dosage: DOSE: 400 MG, EVERY THREE WEEKS
     Route: 042
     Dates: start: 20140717, end: 20141023
  10. HERCEPTIN [Suspect]
     Active Substance: TRASTUZUMAB
     Dosage: DOSE: 410 MG, EVERY THREE WEEKS
     Route: 042
     Dates: start: 20141103, end: 20150105
  11. DEXAMETHASONE [Concomitant]
     Active Substance: DEXAMETHASONE
     Indication: Product used for unknown indication
     Dosage: DOSE: 20 MG
     Route: 042
     Dates: start: 20140627, end: 20140627
  12. DEXAMETHASONE [Concomitant]
     Active Substance: DEXAMETHASONE
     Dosage: DOSE: 12 MG
     Route: 042
     Dates: start: 20140703, end: 20140703
  13. DEXAMETHASONE [Concomitant]
     Active Substance: DEXAMETHASONE
     Dosage: DOSE: 12 MG
     Route: 042
     Dates: start: 20140717, end: 20140717
  14. DEXAMETHASONE [Concomitant]
     Active Substance: DEXAMETHASONE
     Dosage: DOSE:8 MG, EVERY THREE WEEKS
     Route: 042
     Dates: start: 20140731, end: 20141023
  15. DEXAMETHASONE [Concomitant]
     Active Substance: DEXAMETHASONE
     Dosage: DOSE: 12 MG, EVERY THREE WEEKS
     Route: 042
     Dates: start: 20141103, end: 20150105
  16. DIPHENHYDRAMINE [Concomitant]
     Active Substance: DIPHENHYDRAMINE
     Indication: Product used for unknown indication
     Dosage: DOSE: 50 MG, EVERY THREE WEEKS
     Route: 042
     Dates: start: 20140627, end: 20150105
  17. FAMOTIDINE [Concomitant]
     Active Substance: FAMOTIDINE
     Indication: Product used for unknown indication
     Dosage: DOSE: 20 MG, EVERY THREE WEEKS
     Route: 042
     Dates: start: 20140627, end: 20150105
  18. ACETAMINOPHEN [Concomitant]
     Active Substance: ACETAMINOPHEN
     Indication: Product used for unknown indication
     Dosage: DOSE: 650 MG
     Route: 048
     Dates: start: 20140627, end: 20140627
  19. ZOMETA [Concomitant]
     Active Substance: ZOLEDRONIC ACID
     Indication: Metastases to bone
     Dosage: DOSE 4 MG
     Route: 042
     Dates: start: 20140703, end: 20140703
  20. ZOMETA [Concomitant]
     Active Substance: ZOLEDRONIC ACID
     Dosage: DOSE 4 MG
     Route: 042
     Dates: start: 20140807, end: 20140807
  21. ZOMETA [Concomitant]
     Active Substance: ZOLEDRONIC ACID
     Dosage: DOSE 4 MG
     Route: 042
     Dates: start: 20141215, end: 20141215
  22. ZOFRAN [Concomitant]
     Active Substance: ONDANSETRON HYDROCHLORIDE
     Indication: Product used for unknown indication
     Dosage: 24 MILLIGRAM DAILY; 8 MG, EVERY 8 HOURS, AS NEEDED
     Route: 048
  23. VITAMIN B COMPLEX [Concomitant]
     Active Substance: CYANOCOBALAMIN\DEXPANTHENOL\NIACINAMIDE\PYRIDOXINE HYDROCHLORIDE\RIBOFLAVIN 5^-PHOSPHATE SODIUM\THIA
     Indication: Product used for unknown indication
     Dosage: 1 DOSAGE FORMS DAILY; ONCE A DAY
     Route: 048
  24. MORPHINE SULFATE [Concomitant]
     Active Substance: MORPHINE SULFATE
     Indication: Pain
     Dosage: 15 MG IMMEDIATE RELEASE TABLET EVERY 4 HOURS AS NEEDED
     Route: 048

REACTIONS (8)
  - Alopecia areata [Not Recovered/Not Resolved]
  - Madarosis [Not Recovered/Not Resolved]
  - Rectal haemorrhage [Unknown]
  - Hair texture abnormal [Not Recovered/Not Resolved]
  - Hair colour changes [Not Recovered/Not Resolved]
  - Headache [Not Recovered/Not Resolved]
  - Fatigue [Unknown]
  - Vision blurred [Unknown]

NARRATIVE: CASE EVENT DATE: 20141101
